FAERS Safety Report 4516453-4 (Version None)
Quarter: 2004Q4

REPORT INFORMATION
  Report Type: 
  Country: None (occurrence: None)
  Receive Date: 20041202
  Receipt Date: 20040915
  Transmission Date: 20050328
  Serious: No
  Sender: FDA-Public Use
  Company Number: US-GLAXOSMITHKLINE-A0525810A

PATIENT
  Age: 50 Year
  Sex: Female

DRUGS (3)
  1. AUGMENTIN '125' [Suspect]
     Indication: ILL-DEFINED DISORDER
     Dosage: 1000MG PER DAY
     Route: 048
     Dates: start: 20040831, end: 20040908
  2. FLAGYL [Concomitant]
     Route: 065
  3. MINOCYCLINE HCL [Concomitant]

REACTIONS (4)
  - ALOPECIA [None]
  - DRY SKIN [None]
  - HEADACHE [None]
  - TINNITUS [None]
